FAERS Safety Report 22015240 (Version 1)
Quarter: 2023Q1

REPORT INFORMATION
  Report Type: Spontaneous
  Country: SE (occurrence: SE)
  Receive Date: 20230221
  Receipt Date: 20230221
  Transmission Date: 20230417
  Serious: Yes (Other)
  Sender: FDA-Public Use
  Company Number: None

PATIENT
  Age: 9 Year
  Sex: Female
  Weight: 40 kg

DRUGS (10)
  1. HYDROCORTISONE [Suspect]
     Active Substance: HYDROCORTISONE
     Indication: Eczema
     Dates: start: 2013, end: 2021
  2. MOMETASONE FUROATE [Suspect]
     Active Substance: MOMETASONE FUROATE
     Indication: Eczema
     Dates: start: 2019, end: 2021
  3. BUDESONIDE [Concomitant]
     Active Substance: BUDESONIDE
     Indication: Product used for unknown indication
     Dosage: DOSE INHALATION POWDER
     Dates: start: 2017, end: 2021
  4. CLOBETASONE BUTYRATE [Suspect]
     Active Substance: CLOBETASONE BUTYRATE
     Indication: Eczema
     Dosage: DOSAGE: 0.05 % 1GGR DAGL
     Dates: start: 2016, end: 2021
  5. ALBUTEROL SULFATE [Concomitant]
     Active Substance: ALBUTEROL SULFATE
     Indication: Product used for unknown indication
     Dosage: DOSE INHALATION POWDER,DOSE WHEN NEEDED
  6. PROTOPIC [Suspect]
     Active Substance: TACROLIMUS
     Indication: Eczema
     Dates: start: 2019, end: 2021
  7. PROTOPIC [Suspect]
     Active Substance: TACROLIMUS
     Indication: Eczema
     Dates: start: 2019, end: 2021
  8. PROTOPIC [Suspect]
     Active Substance: TACROLIMUS
     Indication: Eczema
     Dates: start: 2019, end: 2021
  9. FLUTICASONE PROPIONATE [Suspect]
     Active Substance: FLUTICASONE PROPIONATE
     Indication: Eczema
     Dates: start: 2014, end: 2021
  10. MONTELUKAST\MONTELUKAST SODIUM [Concomitant]
     Active Substance: MONTELUKAST\MONTELUKAST SODIUM
     Indication: Product used for unknown indication
     Dosage: 5 MG 1/DAG
     Dates: start: 2018, end: 2021

REACTIONS (6)
  - Skin exfoliation [Not Recovered/Not Resolved]
  - Sleep disorder [Not Recovered/Not Resolved]
  - Psychiatric symptom [Not Recovered/Not Resolved]
  - Topical steroid withdrawal reaction [Not Recovered/Not Resolved]
  - Erythema [Not Recovered/Not Resolved]
  - Pruritus [Not Recovered/Not Resolved]

NARRATIVE: CASE EVENT DATE: 20210807
